FAERS Safety Report 5887844-4 (Version None)
Quarter: 2008Q3

REPORT INFORMATION
  Report Type: 
  Country: None (occurrence: None)
  Receive Date: 20080917
  Receipt Date: 20080917
  Transmission Date: 20090109
  Serious: No
  Sender: FDA-Public Use
  Company Number: None

PATIENT
  Age: 83 Year
  Sex: Male
  Weight: 88.9 kg

DRUGS (2)
  1. WARFARIN SODIUM [Suspect]
     Indication: CARDIAC PACEMAKER INSERTION
     Dosage: 8 MG EVERY DAY PO
     Route: 048
     Dates: start: 20070717
  2. WARFARIN SODIUM [Suspect]
     Indication: CARDIOMYOPATHY
     Dosage: 8 MG EVERY DAY PO
     Route: 048
     Dates: start: 20070717

REACTIONS (1)
  - EPISTAXIS [None]
